FAERS Safety Report 7921397-1 (Version None)
Quarter: 2011Q4

REPORT INFORMATION
  Report Type: 
  Country: None (occurrence: None)
  Receive Date: 20111117
  Receipt Date: 20111109
  Transmission Date: 20120403
  Serious: Yes (Other)
  Sender: FDA-Public Use
  Company Number: US-BAYER-2011-109229

PATIENT
  Sex: Female

DRUGS (1)
  1. MIRENA [Suspect]
     Dosage: 20 ?G/D, CONT
     Route: 015
     Dates: start: 20080301, end: 20111016

REACTIONS (6)
  - BREAST DISORDER FEMALE [None]
  - VAGINAL HAEMORRHAGE [None]
  - VOMITING [None]
  - MENSTRUATION DELAYED [None]
  - WEIGHT INCREASED [None]
  - NAUSEA [None]
